FAERS Safety Report 8990924 (Version 1)
Quarter: 2012Q4

REPORT INFORMATION
  Report Type: 
  Country: GB (occurrence: GB)
  Receive Date: 20121231
  Receipt Date: 20121231
  Transmission Date: 20130627
  Serious: Yes (Hospitalization, Disabling)
  Sender: FDA-Public Use
  Company Number: GB-009507513-1212GBR009578

PATIENT
  Age: 92 Year
  Sex: Female

DRUGS (6)
  1. ALENDRONATE SODIUM [Suspect]
     Indication: PROPHYLAXIS
     Dosage: 70 mg, qw
     Route: 048
     Dates: end: 20121130
  2. ANASTROZOLE [Concomitant]
  3. CALCIUM D3 [Concomitant]
  4. DALTEPARIN SODIUM [Concomitant]
  5. DOCUSATE SODIUM [Concomitant]
  6. SENNA [Concomitant]

REACTIONS (1)
  - Hallucinations, mixed [Recovered/Resolved]
